FAERS Safety Report 4836198-0 (Version None)
Quarter: 2005Q4

REPORT INFORMATION
  Report Type: 
  Country: None (occurrence: None)
  Receive Date: 20051123
  Receipt Date: 20051111
  Transmission Date: 20060501
  Serious: Yes (Other)
  Sender: FDA-Public Use
  Company Number: GBWYE139515NOV05

PATIENT
  Sex: Male
  Weight: 46.8 kg

DRUGS (4)
  1. ENBREL [Suspect]
     Indication: POLYARTHRITIS
     Route: 058
     Dates: start: 20030917
  2. PREDNISOLONE [Concomitant]
     Route: 048
     Dates: start: 20040201, end: 20050801
  3. FELDENE [Concomitant]
     Dosage: 15MG NIGHTLY
     Dates: start: 20030401
  4. METHOTREXATE [Concomitant]
     Dates: start: 20041203, end: 20050401

REACTIONS (2)
  - INJECTION SITE PRURITUS [None]
  - INJECTION SITE RASH [None]
